FAERS Safety Report 6501709-6 (Version None)
Quarter: 2009Q4

REPORT INFORMATION
  Report Type: 
  Country: None (occurrence: None)
  Receive Date: 20091216
  Receipt Date: 20091209
  Transmission Date: 20100525
  Serious: Yes (Other)
  Sender: FDA-Public Use
  Company Number: GB-TEVA-217778ISR

PATIENT
  Age: 45 Year
  Sex: Female

DRUGS (1)
  1. CARBAMAZEPINE [Suspect]

REACTIONS (2)
  - MEMORY IMPAIRMENT [None]
  - RESTLESSNESS [None]
